FAERS Safety Report 5238542-1 (Version None)
Quarter: 2007Q1

REPORT INFORMATION
  Report Type: 
  Country: None (occurrence: None)
  Receive Date: 20070215
  Receipt Date: 20070214
  Transmission Date: 20070707
  Serious: Yes (Hospitalization, Disabling)
  Sender: FDA-Public Use
  Company Number: JP-GLAXOSMITHKLINE-B0458253A

PATIENT
  Age: 58 Year
  Sex: Male

DRUGS (8)
  1. ZIAGEN [Suspect]
     Indication: ACQUIRED IMMUNODEFICIENCY SYNDROME
     Dosage: 300MG TWICE PER DAY
     Route: 048
     Dates: start: 20050512, end: 20060315
  2. RETROVIR [Concomitant]
     Indication: ACQUIRED IMMUNODEFICIENCY SYNDROME
     Dosage: 400MG PER DAY
     Route: 048
     Dates: start: 20060316
  3. EPIVIR [Concomitant]
     Indication: ACQUIRED IMMUNODEFICIENCY SYNDROME
     Dosage: 300MG PER DAY
     Route: 048
     Dates: start: 19981111, end: 20050907
  4. VIDEX EC [Concomitant]
     Indication: ACQUIRED IMMUNODEFICIENCY SYNDROME
     Route: 048
     Dates: start: 20050908
  5. ZERIT [Concomitant]
     Indication: ACQUIRED IMMUNODEFICIENCY SYNDROME
     Dosage: 80MG PER DAY
     Route: 048
     Dates: start: 19981111, end: 20050511
  6. STOCRIN [Concomitant]
     Indication: ACQUIRED IMMUNODEFICIENCY SYNDROME
     Dosage: 600MG PER DAY
     Route: 048
     Dates: start: 20040527
  7. CARDENALIN [Concomitant]
     Indication: HYPERTENSION
     Dosage: 1MG PER DAY
     Route: 048
     Dates: start: 20050401
  8. ZYLORIC [Concomitant]
     Dosage: 100MG PER DAY
     Route: 048
     Dates: start: 20050401

REACTIONS (3)
  - DYSPNOEA [None]
  - PALPITATIONS [None]
  - WEIGHT DECREASED [None]
